FAERS Safety Report 8879783 (Version 3)
Quarter: 2013Q2

REPORT INFORMATION
  Report Type: Spontaneous
  Country: FR (occurrence: FR)
  Receive Date: 20121101
  Receipt Date: 20130429
  Transmission Date: 20140414
  Serious: Yes (Death, Life-Threatening, Hospitalization, Disabling)
  Sender: FDA-Public Use
  Company Number: FR-CELGENEUS-056-50794-12102747

PATIENT
  Age: 67 Year
  Sex: 0

DRUGS (5)
  1. VIDAZA [Suspect]
     Indication: ACUTE MYELOID LEUKAEMIA
     Dosage: D 1-7 OUT OF 28
     Route: 058
     Dates: start: 20120711, end: 20120905
  2. NEULASTA [Concomitant]
     Indication: PROPHYLAXIS
     Route: 065
  3. ZOPHAN [Concomitant]
     Indication: NAUSEA
     Route: 048
     Dates: start: 20120711, end: 20120905
  4. PREDNISOLONE [Concomitant]
     Indication: SKIN OEDEMA
     Route: 048
     Dates: start: 201208, end: 201209
  5. TRAMADOL [Concomitant]
     Indication: PAIN
     Route: 048
     Dates: start: 201209, end: 201209

REACTIONS (3)
  - Abscess limb [Fatal]
  - Pancytopenia [Fatal]
  - Sepsis [Unknown]
